FAERS Safety Report 19048206 (Version 1)
Quarter: 2021Q1

REPORT INFORMATION
  Report Type: Spontaneous
  Country: GB (occurrence: GB)
  Receive Date: 20210324
  Receipt Date: 20210324
  Transmission Date: 20210420
  Serious: Yes (Life-Threatening, Hospitalization)
  Sender: FDA-Public Use
  Company Number: GB-DRREDDYS-GER/UKI/21/0133270

PATIENT
  Age: 16 Year
  Sex: Male
  Weight: 55.6 kg

DRUGS (5)
  1. PROMETHAZINE HYDROCHLORIDE. [Concomitant]
     Active Substance: PROMETHAZINE HYDROCHLORIDE
     Indication: ILL-DEFINED DISORDER
  2. SERTRALINE [Concomitant]
     Active Substance: SERTRALINE HYDROCHLORIDE
     Indication: ILL-DEFINED DISORDER
  3. METHYLPHENIDATE HYDROCHLORIDE. [Concomitant]
     Active Substance: METHYLPHENIDATE HYDROCHLORIDE
     Indication: ILL-DEFINED DISORDER
  4. QUETIAPINE FUMARATE. [Concomitant]
     Active Substance: QUETIAPINE FUMARATE
     Indication: ILL-DEFINED DISORDER
  5. FLUOXETINE [Suspect]
     Active Substance: FLUOXETINE HYDROCHLORIDE
     Indication: CHILDHOOD DEPRESSION
     Dosage: 10MG
     Route: 048
     Dates: start: 20210218, end: 20210302

REACTIONS (1)
  - Overdose [Not Recovered/Not Resolved]

NARRATIVE: CASE EVENT DATE: 20210228
